FAERS Safety Report 5557594-2 (Version None)
Quarter: 2007Q4

REPORT INFORMATION
  Report Type: 
  Country: None (occurrence: None)
  Receive Date: 20071214
  Receipt Date: 20071212
  Transmission Date: 20080405
  Serious: Yes (Other)
  Sender: FDA-Public Use
  Company Number: A0698598A

PATIENT
  Age: 36 Year
  Sex: Female

DRUGS (4)
  1. ADVAIR DISKUS 100/50 [Suspect]
     Indication: ASTHMA
     Route: 055
     Dates: start: 20000101
  2. SINGULAIR [Concomitant]
  3. LEVOTHYROXINE SODIUM [Concomitant]
  4. ALBUTEROL [Concomitant]

REACTIONS (5)
  - ABNORMAL DREAMS [None]
  - ASTHMA [None]
  - ILL-DEFINED DISORDER [None]
  - MIDDLE INSOMNIA [None]
  - RESTLESS LEGS SYNDROME [None]
